FAERS Safety Report 8822319 (Version 2)
Quarter: 2012Q4

REPORT INFORMATION
  Report Type: 
  Country: TH (occurrence: TH)
  Receive Date: 20121003
  Receipt Date: 20121109
  Transmission Date: 20130627
  Serious: Yes (Death, Hospitalization, Other)
  Sender: FDA-Public Use
  Company Number: PHHY2012TH085600

PATIENT
  Age: 52 Year
  Sex: Male

DRUGS (2)
  1. GLIVEC [Suspect]
     Indication: CHRONIC MYELOID LEUKAEMIA
     Dosage: 400 mg, QD
     Route: 048
     Dates: start: 20120712, end: 20120821
  2. GLIVEC [Suspect]
     Dosage: 800 mg, daily
     Route: 048
     Dates: start: 20120904, end: 20120905

REACTIONS (9)
  - Death [Fatal]
  - Pneumonia [Unknown]
  - Lung infiltration [Unknown]
  - Respiratory failure [Unknown]
  - Dyspnoea [Unknown]
  - Hypoxia [Unknown]
  - Pyrexia [Unknown]
  - Pancytopenia [Unknown]
  - Blast crisis in myelogenous leukaemia [Unknown]
